FAERS Safety Report 4881590-1 (Version None)
Quarter: 2005Q4

REPORT INFORMATION
  Report Type: 
  Country: None (occurrence: None)
  Receive Date: 20051209
  Receipt Date: 20050816
  Transmission Date: 20060501
  Serious: Yes (Death, Other)
  Sender: FDA-Public Use
  Company Number: USA-2005-0021051

PATIENT
  Age: 28 Year
  Sex: Male

DRUGS (5)
  1. OXYCODONE HCL [Suspect]
  2. COCAINE (COCAINE) [Suspect]
  3. FENTANYL [Suspect]
  4. OXYMORPHONE HYDROCHLORIDE [Suspect]
  5. BENZODIAZEPINE DERIVATIVES [Suspect]

REACTIONS (5)
  - DRUG DEPENDENCE [None]
  - MULTIPLE DRUG OVERDOSE [None]
  - POLYSUBSTANCE ABUSE [None]
  - RESPIRATORY DEPRESSION [None]
  - VOMITING [None]
